FAERS Safety Report 16720277 (Version 1)
Quarter: 2019Q4

REPORT INFORMATION
  Report Type: Spontaneous
  Country: US (occurrence: US)
  Receive Date: 20190819
  Receipt Date: 20190819
  Transmission Date: 20200122
  Serious: Yes (Hospitalization, Other)
  Sender: FDA-Public Use
  Company Number: None

PATIENT
  Age: 14 Year
  Sex: Female
  Weight: 72 kg

DRUGS (3)
  1. MELATONIN 3MG [Concomitant]
  2. MONTELUKAST SODIUM TABLETS USP [Suspect]
     Active Substance: MONTELUKAST SODIUM
     Indication: ASTHMA
     Dosage: ?          QUANTITY:1 TABLET(S);?
     Route: 048
     Dates: start: 20190610, end: 20190804
  3. MONTELUKAST SODIUM TABLETS USP [Suspect]
     Active Substance: MONTELUKAST SODIUM
     Indication: SEASONAL ALLERGY
     Dosage: ?          QUANTITY:1 TABLET(S);?
     Route: 048
     Dates: start: 20190610, end: 20190804

REACTIONS (8)
  - Suicide attempt [None]
  - Nightmare [None]
  - Abdominal discomfort [None]
  - Aggression [None]
  - Intentional overdose [None]
  - Vomiting [None]
  - Suicidal ideation [None]
  - Depression [None]

NARRATIVE: CASE EVENT DATE: 20190724
